FAERS Safety Report 6540570-0 (Version None)
Quarter: 2010Q1

REPORT INFORMATION
  Report Type: 
  Country: None (occurrence: None)
  Receive Date: 20100113
  Receipt Date: 20091228
  Transmission Date: 20100710
  Serious: No
  Sender: FDA-Public Use
  Company Number: B0623816A

PATIENT
  Age: 31 Year
  Sex: Female

DRUGS (1)
  1. CARVEDILOL [Suspect]
     Dosage: 875 MG

REACTIONS (3)
  - CIRCULATORY COLLAPSE [None]
  - HYPOTENSION [None]
  - NO THERAPEUTIC RESPONSE [None]
